FAERS Safety Report 6754230-4 (Version None)
Quarter: 2010Q2

REPORT INFORMATION
  Report Type: 
  Country: None (occurrence: None)
  Receive Date: 20100601
  Receipt Date: 20100520
  Transmission Date: 20101027
  Serious: Yes (Hospitalization)
  Sender: FDA-Public Use
  Company Number: 2010S1000009-002

PATIENT
  Age: 76 Year
  Sex: Female

DRUGS (3)
  1. PITAVASTATIN [Suspect]
  2. PITAVASTATIN [Concomitant]
  3. CANDESARTAN CILEXETIL [Concomitant]

REACTIONS (2)
  - ADRENAL INSUFFICIENCY [None]
  - PALPITATIONS [None]
